FAERS Safety Report 8056309-6 (Version None)
Quarter: 2012Q1

REPORT INFORMATION
  Report Type: 
  Country: None (occurrence: None)
  Receive Date: 20120119
  Receipt Date: 20110414
  Transmission Date: 20120608
  Serious: Yes (Hospitalization)
  Sender: FDA-Public Use
  Company Number: US-SANOFI-AVENTIS-2011SA001184

PATIENT
  Age: 82 Year
  Sex: Female
  Weight: 122.7 kg

DRUGS (11)
  1. ZAROXOLYN [Concomitant]
  2. COLCHICINE [Concomitant]
  3. SYNTHROID [Concomitant]
  4. KLOR-CON [Concomitant]
  5. ATACAND [Concomitant]
  6. LASIX [Suspect]
     Route: 042
  7. ALLOPURINOL [Concomitant]
  8. LANOXIN [Concomitant]
  9. COUMADIN [Concomitant]
  10. ALL OTHER THERAPEUTIC PRODUCTS [Concomitant]
  11. LASIX [Suspect]
     Route: 048

REACTIONS (10)
  - MOVEMENT DISORDER [None]
  - PAIN IN EXTREMITY [None]
  - DRUG INEFFECTIVE [None]
  - PRODUCT QUALITY ISSUE [None]
  - SKIN INDURATION [None]
  - OEDEMA PERIPHERAL [None]
  - LIMB DISCOMFORT [None]
  - SKIN DISCOLOURATION [None]
  - GAIT DISTURBANCE [None]
  - WEIGHT INCREASED [None]
